FAERS Safety Report 10248905 (Version 1)
Quarter: 2014Q2

REPORT INFORMATION
  Report Type: Spontaneous
  Country: US (occurrence: None)
  Receive Date: 20140522
  Receipt Date: 20140522
  Transmission Date: 20141212
  Serious: No
  Sender: FDA-Public Use
  Company Number: 1000060450

PATIENT
  Age: 79 Year
  Sex: Female

DRUGS (2)
  1. TUDORZA PRESSAIR [Suspect]
     Indication: CHRONIC OBSTRUCTIVE PULMONARY DISEASE
     Dosage: 800 UG (400 UG, 2 IN 1)
     Dates: start: 201312
  2. SYMBICORT (BUDESONIDE W/FORMOTEROL FUMARATE) [Concomitant]

REACTIONS (2)
  - Throat irritation [None]
  - Dry mouth [None]
